FAERS Safety Report 5701983-X (Version None)
Quarter: 2008Q2

REPORT INFORMATION
  Report Type: 
  Country: None (occurrence: None)
  Receive Date: 20080411
  Receipt Date: 20070417
  Transmission Date: 20081010
  Serious: No
  Sender: FDA-Public Use
  Company Number: US-ABBOTT-07P-163-0365553-00

PATIENT
  Sex: Female
  Weight: 90.8 kg

DRUGS (1)
  1. DEPAKOTE [Suspect]
     Indication: BIPOLAR DISORDER
     Route: 048
     Dates: start: 20070315, end: 20070403

REACTIONS (3)
  - FATIGUE [None]
  - INCREASED APPETITE [None]
  - SOMNOLENCE [None]
